FAERS Safety Report 9617592 (Version 1)
Quarter: 2013Q4

REPORT INFORMATION
  Report Type: Spontaneous
  Country: US (occurrence: US)
  Receive Date: 20131011
  Receipt Date: 20131011
  Transmission Date: 20140711
  Serious: No
  Sender: FDA-Public Use
  Company Number: US-PFIZER INC-2013291893

PATIENT
  Age: 31 Year
  Sex: Female
  Weight: 104.76 kg

DRUGS (8)
  1. XELJANZ [Suspect]
     Dosage: 5MG (1 TABLET) TWICE DAILY
     Route: 048
  2. TRAMADOL HYDROCHLORIDE [Concomitant]
     Dosage: 50MG
  3. METHOTREXATE [Concomitant]
     Dosage: 2.5 MG
  4. VITAMIN D [Concomitant]
     Dosage: 400 UNIT
  5. TRAZODONE [Concomitant]
     Dosage: 50MG
  6. FOLIC ACID [Concomitant]
     Dosage: UNK
  7. IRON [Concomitant]
     Dosage: UNK
  8. PLAQUENIL [Concomitant]
     Dosage: 200 MG

REACTIONS (5)
  - Malaise [Unknown]
  - Nausea [Unknown]
  - Vomiting [Unknown]
  - Fatigue [Unknown]
  - Dizziness [Unknown]
